FAERS Safety Report 9603192 (Version 1)
Quarter: 2013Q4

REPORT INFORMATION
  Report Type: Spontaneous
  Country: US (occurrence: US)
  Receive Date: 20131007
  Receipt Date: 20131007
  Transmission Date: 20140711
  Serious: Yes (Hospitalization)
  Sender: FDA-Public Use
  Company Number: US-B.I. PHARMACEUTICALS,INC./RIDGEFIELD-2013-BI-30919BP

PATIENT
  Age: 47 Year
  Sex: Female

DRUGS (5)
  1. SPIRIVA [Suspect]
     Indication: STATUS ASTHMATICUS
     Dosage: 18 MCG
     Route: 055
     Dates: start: 2005
  2. ATROVENT INHALATION SOLUTION [Suspect]
     Indication: STATUS ASTHMATICUS
     Dosage: 136 MCG
     Route: 055
     Dates: start: 2005
  3. ADVAIR [Concomitant]
     Route: 055
  4. PROVENTIL [Concomitant]
     Route: 055
  5. SINGULAIR [Concomitant]
     Route: 048

REACTIONS (4)
  - Cholelithiasis [Recovered/Resolved]
  - Abdominal pain [Not Recovered/Not Resolved]
  - Off label use [Not Recovered/Not Resolved]
  - Off label use [Not Recovered/Not Resolved]
